FAERS Safety Report 6377697-2 (Version None)
Quarter: 2009Q3

REPORT INFORMATION
  Report Type: 
  Country: None (occurrence: None)
  Receive Date: 20090925
  Receipt Date: 20090917
  Transmission Date: 20100115
  Serious: Yes (Disabling)
  Sender: FDA-Public Use
  Company Number: US-AVENTIS-200918428US

PATIENT
  Sex: Female
  Weight: 99.79 kg

DRUGS (9)
  1. LANTUS [Suspect]
     Indication: DIABETES MELLITUS
     Dosage: DOSE: 60-65 U AT 10 AM
     Dates: start: 20080701
  2. LISINOPRIL [Concomitant]
     Dosage: DOSE: UNK
  3. NORVASC [Concomitant]
     Dosage: DOSE: UNK
  4. VITAMIN E [Concomitant]
     Dosage: DOSE: UNK
  5. VITAMIN B NOS [Concomitant]
     Dosage: DOSE: UNK
  6. MULTI-VITAMINS [Concomitant]
     Dosage: DOSE: UNK
  7. KLOR-CON [Concomitant]
     Dosage: DOSE: UNK
  8. LIPITOR [Concomitant]
     Dosage: DOSE: 10 MG
  9. BUFFERIN [Concomitant]
     Dosage: DOSE: UNK

REACTIONS (2)
  - ARTHRITIS [None]
  - WHEELCHAIR USER [None]
